FAERS Safety Report 6839765-8 (Version None)
Quarter: 2010Q3

REPORT INFORMATION
  Report Type: 
  Country: None (occurrence: None)
  Receive Date: 20100708
  Receipt Date: 20100624
  Transmission Date: 20110219
  Serious: Yes (Hospitalization, Other)
  Sender: FDA-Public Use
  Company Number: 2010AL003506

PATIENT
  Age: 32 Year
  Sex: Male

DRUGS (5)
  1. DILTIAZEM HYDROCHLORIDE [Suspect]
     Indication: DRESSLER'S SYNDROME
     Dosage: 90 MG; BID; PO
     Route: 048
     Dates: start: 20100512, end: 20100526
  2. ASPIRIN [Concomitant]
  3. CLOPIDOGREL [Concomitant]
  4. RAMIPRIL [Concomitant]
  5. BISOPROLOL [Concomitant]

REACTIONS (3)
  - ACUTE GENERALISED EXANTHEMATOUS PUSTULOSIS [None]
  - NEUTROPENIA [None]
  - PYREXIA [None]
